FAERS Safety Report 4891559-9 (Version None)
Quarter: 2006Q1

REPORT INFORMATION
  Report Type: 
  Country: None (occurrence: None)
  Receive Date: 20060125
  Receipt Date: 20050413
  Transmission Date: 20060701
  Serious: Yes (Hospitalization, Disabling)
  Sender: FDA-Public Use
  Company Number: US-MERCK-0504USA02169

PATIENT
  Age: 53 Year
  Sex: Male
  Weight: 114 kg

DRUGS (2)
  1. VIOXX [Suspect]
     Indication: ARTHRITIS
     Route: 048
     Dates: start: 20011001, end: 20040701
  2. VIOXX [Suspect]
     Indication: GOUT
     Route: 048
     Dates: start: 20011001, end: 20040701

REACTIONS (11)
  - ACUTE MYOCARDIAL INFARCTION [None]
  - ANGINA PECTORIS [None]
  - ARTERIOSCLEROSIS [None]
  - CARDIAC DISORDER [None]
  - CORONARY ARTERY DISEASE [None]
  - CORONARY ARTERY OCCLUSION [None]
  - DEPRESSION [None]
  - FATIGUE [None]
  - MENTAL DISORDER [None]
  - MYOCARDIAL INFARCTION [None]
  - VENTRICULAR HYPERTROPHY [None]
